FAERS Safety Report 10025427 (Version 4)
Quarter: 2014Q3

REPORT INFORMATION
  Report Type: Report from Study
  Country: US (occurrence: US)
  Receive Date: 20140320
  Receipt Date: 20140731
  Transmission Date: 20150326
  Serious: Yes (Other)
  Sender: FDA-Public Use
  Company Number: US-ALEXION-A201202822

PATIENT

DRUGS (1)
  1. SOLIRIS [Suspect]
     Active Substance: ECULIZUMAB
     Indication: HAEMOLYTIC URAEMIC SYNDROME
     Dosage: 1200 MG, Q4W
     Route: 042
     Dates: start: 20111027

REACTIONS (11)
  - Blood lactate dehydrogenase increased [Unknown]
  - Plasmapheresis [Unknown]
  - Biopsy kidney [Unknown]
  - Haemoglobin decreased [Unknown]
  - Hypoaesthesia [Not Recovered/Not Resolved]
  - Weight increased [Unknown]
  - Blood urea increased [Unknown]
  - Haematocrit decreased [Unknown]
  - Abdominal distension [Unknown]
  - Blood creatinine increased [Unknown]
  - Viral infection [Unknown]

NARRATIVE: CASE EVENT DATE: 20120104
